FAERS Safety Report 21985259 (Version 1)
Quarter: 2023Q1

REPORT INFORMATION
  Report Type: Spontaneous
  Country: US (occurrence: None)
  Receive Date: 20230210
  Receipt Date: 20230210
  Transmission Date: 20230418
  Serious: Yes (unspecified)
  Sender: FDA-Public Use
  Company Number: None

PATIENT
  Age: 46 Year
  Sex: Female

DRUGS (3)
  1. DAXXIFY [Suspect]
     Active Substance: DAXIBOTULINUMTOXIN A-LANM
  2. COSMETICS [Suspect]
     Active Substance: COSMETICS
  3. DAXXIFY [Concomitant]
     Active Substance: DAXIBOTULINUMTOXIN A-LANM

REACTIONS (2)
  - Dry eye [None]
  - Blepharospasm [None]

NARRATIVE: CASE EVENT DATE: 20221218
